FAERS Safety Report 4545356-4 (Version None)
Quarter: 2004Q4

REPORT INFORMATION
  Report Type: 
  Country: None (occurrence: None)
  Receive Date: 20041230
  Receipt Date: 20020315
  Transmission Date: 20050328
  Serious: Yes (Life-Threatening)
  Sender: FDA-Public Use
  Company Number: 2002-DE-00676ZA(0)

PATIENT
  Age: 39 Year
  Sex: Female

DRUGS (3)
  1. VIRAMUNE [Suspect]
     Indication: HIV INFECTION
     Dosage: SEE IMAGE
     Route: 048
     Dates: start: 20010222, end: 20010307
  2. VIRAMUNE [Suspect]
     Indication: HIV INFECTION
     Dosage: SEE IMAGE
     Route: 048
     Dates: start: 20010308, end: 20010310
  3. COMBIVIR (ANTIVIRALS FOR  SYSTEMIC USE) (TA) [Concomitant]

REACTIONS (3)
  - HEADACHE [None]
  - RASH GENERALISED [None]
  - RASH PRURITIC [None]
